FAERS Safety Report 23306490 (Version 2)
Quarter: 2024Q2

REPORT INFORMATION
  Report Type: Spontaneous
  Country: FR (occurrence: FR)
  Receive Date: 20231218
  Receipt Date: 20240603
  Transmission Date: 20240716
  Serious: Yes (Death, Other)
  Sender: FDA-Public Use
  Company Number: FR-AFSSAPS-AM2023001067

PATIENT
  Age: 70 Year
  Sex: Male
  Weight: 88 kg

DRUGS (10)
  1. PERINDOPRIL [Suspect]
     Active Substance: PERINDOPRIL
     Indication: Hypertension
     Dosage: UNK
     Route: 048
  2. HYDROCORTISONE [Suspect]
     Active Substance: HYDROCORTISONE
     Indication: Immune thrombocytopenia
     Dosage: UNK
     Route: 048
     Dates: start: 20231016
  3. ESOMEPRAZOLE [Suspect]
     Active Substance: ESOMEPRAZOLE
     Indication: Prophylaxis against gastrointestinal ulcer
     Dosage: 40 MILLIGRAM
     Route: 048
     Dates: start: 20231006
  4. CRESTOR [Suspect]
     Active Substance: ROSUVASTATIN CALCIUM
     Indication: Dyslipidaemia
     Dosage: 20 MILLIGRAM, ONCE A DAY
     Route: 065
  5. ELTROMBOPAG OLAMINE [Suspect]
     Active Substance: ELTROMBOPAG OLAMINE
     Indication: Thrombocytopenia
     Dosage: 50 MILLIGRAM (1 TOTAL)
     Route: 048
     Dates: start: 20231017, end: 20231017
  6. PREDNISOLONE SODIUM METAZOATE [Suspect]
     Active Substance: PREDNISOLONE SODIUM METAZOATE
     Indication: Immune thrombocytopenia
     Dosage: 60 MILLIGRAM, ONCE A DAY
     Route: 065
  7. CYANOCOBALAMIN [Suspect]
     Active Substance: CYANOCOBALAMIN
     Indication: Vitamin supplementation
     Dosage: UNK
     Route: 048
     Dates: start: 20231016
  8. FOLIC ACID [Suspect]
     Active Substance: FOLIC ACID
     Indication: Vitamin supplementation
     Dosage: UNK
     Route: 048
     Dates: start: 20231016
  9. POTASSIUM CHLORIDE [Suspect]
     Active Substance: POTASSIUM CHLORIDE
     Indication: Hypokalaemia
     Dosage: 2 DOSAGE FORM
     Route: 048
     Dates: start: 20231006, end: 20231017
  10. HERBALS\SAW PALMETTO [Suspect]
     Active Substance: HERBALS\SAW PALMETTO
     Indication: Benign prostatic hyperplasia
     Dosage: 30 MILLIGRAM, ONCE A DAY
     Route: 048

REACTIONS (1)
  - Ischaemic stroke [Fatal]

NARRATIVE: CASE EVENT DATE: 20231018
